FAERS Safety Report 21331314 (Version 1)
Quarter: 2022Q3

REPORT INFORMATION
  Report Type: Spontaneous
  Country: IT (occurrence: IT)
  Receive Date: 20220914
  Receipt Date: 20220914
  Transmission Date: 20221027
  Serious: Yes (Other)
  Sender: FDA-Public Use
  Company Number: None

PATIENT
  Age: 69 Year
  Sex: Male

DRUGS (9)
  1. LENALIDOMIDE [Suspect]
     Active Substance: LENALIDOMIDE
     Indication: Plasma cell myeloma
     Dosage: LENALIDOMIDE 15 MG ; POSOLOGIA: 1 CPS AL GIORNO PER 21 GIORNI CONSECUTIVI POI STOP ASSUNZIONE PER 7
     Route: 048
     Dates: start: 20220510, end: 20220523
  2. ETORICOXIB [Suspect]
     Active Substance: ETORICOXIB
     Indication: Product used for unknown indication
     Route: 048
     Dates: start: 20220520, end: 20220523
  3. CALCIUM CARBONATE\CHOLECALCIFEROL [Concomitant]
     Active Substance: CALCIUM CARBONATE\CHOLECALCIFEROL
     Indication: Product used for unknown indication
     Dosage: IDEOS 1 CPS PER 2 VOLTE AL GIORNO PER 5 GIORNI DOPO ZOMETA?IDEOS1 CPS TWICE DAILY FOR 5 DAYS AFTER Z
  4. ZOMETA [Concomitant]
     Active Substance: ZOLEDRONIC ACID
     Indication: Product used for unknown indication
     Dosage: ZOMETA 1 FL OGNI 28 GIORNI.?ZOMETA 1 FL EVERY 28 DAYS.
     Route: 042
     Dates: start: 20220510
  5. ACYCLOVIR [Concomitant]
     Active Substance: ACYCLOVIR
     Indication: Product used for unknown indication
     Dosage: ACICLOVIR 400 MG , 1 CPS DUE VOLTE AL GIORNO?ACYCLOVIR 400 MG , 1 CPS TWICE A DAY
     Route: 048
  6. ASPIRIN [Concomitant]
     Active Substance: ASPIRIN
     Indication: Product used for unknown indication
     Dosage: CARDIOASPIRIN 1 CPS 1 VOLTA AL GIORNO?CARDIOASPIRIN 1 CPS 1 TIME A DAY
     Route: 048
  7. LASIX [Concomitant]
     Active Substance: FUROSEMIDE
     Indication: Product used for unknown indication
     Dosage: LASIX 25 MG 1 CPR A GIORNI ALTERNI.?LASIX 25 MG 1 CPR EVERY OTHER DAY.
     Route: 048
  8. BACTRIM [Concomitant]
     Active Substance: SULFAMETHOXAZOLE\TRIMETHOPRIM
     Indication: Product used for unknown indication
     Dosage: BACTRIM 1 CPS SOLO LUNEDI, MERCOLEDI E VENERDI (FARMACO POI SOSPESO)?BACTRIM 1 CPS MONDAY, WEDNESDAY
     Route: 048
  9. DEXAMETHASONE [Concomitant]
     Active Substance: DEXAMETHASONE
     Indication: Product used for unknown indication
     Dosage: SOLDESAM ASSUNTO SOLO IL 3 MAGGIO?SOLDESAM HIRED ONLY ON MAY 3
     Dates: start: 20220503, end: 20220503

REACTIONS (1)
  - Drug eruption [Recovered/Resolved]

NARRATIVE: CASE EVENT DATE: 20220524
